FAERS Safety Report 6745585-5 (Version None)
Quarter: 2010Q2

REPORT INFORMATION
  Report Type: 
  Country: None (occurrence: None)
  Receive Date: 20100528
  Receipt Date: 20100517
  Transmission Date: 20101027
  Serious: Yes (Death, Life-Threatening)
  Sender: FDA-Public Use
  Company Number: AU-SOLVAY-00210003314

PATIENT
  Age: 57 Year
  Sex: Male
  Weight: 100 kg

DRUGS (2)
  1. METFORMIN HYDROCHLORIDE [Concomitant]
     Indication: DRUG USE FOR UNKNOWN INDICATION
     Dosage: DAILY DOSE:  UNKNOWN
     Route: 065
  2. PERINDOPRIL NOS [Suspect]
     Indication: DRUG USE FOR UNKNOWN INDICATION
     Dosage: DAILY DOSE:  UNKNOWN
     Route: 065

REACTIONS (8)
  - ABDOMINAL PAIN UPPER [None]
  - ATELECTASIS [None]
  - DIARRHOEA [None]
  - EMBOLIC CEREBRAL INFARCTION [None]
  - MUCOSAL DRYNESS [None]
  - PLEURAL EFFUSION [None]
  - POLLAKIURIA [None]
  - VOMITING [None]
